FAERS Safety Report 8859153 (Version 1)
Quarter: 2012Q4

REPORT INFORMATION
  Report Type: Spontaneous
  Country: SK (occurrence: None)
  Receive Date: 20121023
  Receipt Date: 20121023
  Transmission Date: 20130627
  Serious: Yes (Hospitalization)
  Sender: FDA-Public Use
  Company Number: 1210SVK004434

PATIENT
  Age: 54 Year
  Sex: Female

DRUGS (9)
  1. CEDAX [Suspect]
     Indication: BODY TEMPERATURE INCREASED
     Route: 048
     Dates: start: 20120809, end: 20120812
  2. PRESTANCE (AMLODIPINE BESYLATE, PERINDOPRIL ARGININE) [Concomitant]
  3. AKTIFERRIN [Concomitant]
  4. PANZYTRAT (PANCREATIN) [Concomitant]
  5. EBRANTIL (URAPIDIL) [Concomitant]
  6. EGILOK (METOPROLOL TARTRATE) [Concomitant]
  7. EUTHYROX (LEVOTHYROXINE SODIUM) [Concomitant]
  8. ZALDIAR (ACETAMINOPHEN, TRAMADOL HYDROCHLORIDE) [Concomitant]
  9. SOMATULINE (LANREOTIDE ACETATE) [Concomitant]

REACTIONS (1)
  - Clostridium difficile colitis [None]
